FAERS Safety Report 19095974 (Version 2)
Quarter: 2021Q2

REPORT INFORMATION
  Report Type: Spontaneous
  Country: US (occurrence: US)
  Receive Date: 20210406
  Receipt Date: 20210505
  Transmission Date: 20210717
  Serious: No
  Sender: FDA-Public Use
  Company Number: US-SA-2021SA111577

PATIENT
  Age: 29 Year
  Sex: Male

DRUGS (1)
  1. DUPIXENT [Suspect]
     Active Substance: DUPILUMAB
     Indication: NASAL POLYPS
     Dosage: 300 MG, QOW
     Route: 058
     Dates: start: 20210208

REACTIONS (4)
  - Condition aggravated [Unknown]
  - Sinus disorder [Not Recovered/Not Resolved]
  - Hunger [Not Recovered/Not Resolved]
  - Product dose omission issue [Unknown]
